FAERS Safety Report 10345022 (Version 2)
Quarter: 2014Q3

REPORT INFORMATION
  Report Type: Spontaneous
  Country: US (occurrence: US)
  Receive Date: 20140728
  Receipt Date: 20140903
  Transmission Date: 20150326
  Serious: Yes (Hospitalization, Other)
  Sender: FDA-Public Use
  Company Number: US-ASTELLAS-2014US008740

PATIENT
  Age: 53 Year
  Sex: Male

DRUGS (1)
  1. PROGRAF [Suspect]
     Active Substance: TACROLIMUS\TACROLIMUS ANHYDROUS
     Indication: PANCREAS TRANSPLANT
     Dosage: 5 MG, (3 MG IN THE MORNING AND 2 MG AT NIGHT)
     Route: 048

REACTIONS (7)
  - Amylase increased [Unknown]
  - Blood creatinine increased [Unknown]
  - Off label use [Unknown]
  - Treatment noncompliance [Unknown]
  - Kidney transplant rejection [Unknown]
  - Lipase increased [Unknown]
  - Pancreas transplant rejection [Unknown]

NARRATIVE: CASE EVENT DATE: 20140618
